FAERS Safety Report 20903447 (Version 1)
Quarter: 2022Q2

REPORT INFORMATION
  Report Type: Spontaneous
  Country: US (occurrence: US)
  Receive Date: 20220601
  Receipt Date: 20220601
  Transmission Date: 20220721
  Serious: Yes (Other)
  Sender: FDA-Public Use
  Company Number: US-BRISTOL-MYERS SQUIBB COMPANY-2022-043864

PATIENT
  Age: 59 Year
  Sex: Male
  Weight: 103.87 kg

DRUGS (2)
  1. POMALYST [Suspect]
     Active Substance: POMALIDOMIDE
     Indication: Plasma cell myeloma in remission
     Dosage: DAY 1-21 Q 28 DAYS
     Route: 048
     Dates: start: 20220324, end: 20220513
  2. POMALYST [Suspect]
     Active Substance: POMALIDOMIDE
     Dosage: DAY 1-21 Q 28 DAYS
     Route: 048
     Dates: start: 20220520

REACTIONS (3)
  - Therapy change [Unknown]
  - Blood test abnormal [Unknown]
  - Drug ineffective [Unknown]
